FAERS Safety Report 8672374 (Version 2)
Quarter: 2014Q3

REPORT INFORMATION
  Report Type: Spontaneous
  Country: US (occurrence: US)
  Receive Date: 20120719
  Receipt Date: 20140728
  Transmission Date: 20150326
  Serious: Yes (Hospitalization, Other)
  Sender: FDA-Public Use
  Company Number: US-RANBAXY-2012US-57829

PATIENT
  Sex: Female

DRUGS (3)
  1. ISOTRETINOIN [Suspect]
     Active Substance: ISOTRETINOIN
     Indication: ACNE
     Dosage: UNKNOWN
     Route: 048
  2. ACCUTANE [Suspect]
     Active Substance: ISOTRETINOIN
     Indication: ACNE
     Dosage: UNKNOWN
     Route: 048
  3. AMNESTEEM [Suspect]
     Active Substance: ISOTRETINOIN
     Indication: ACNE
     Dosage: UNK
     Route: 048
     Dates: start: 200505, end: 200512

REACTIONS (7)
  - Colitis ulcerative [Unknown]
  - Rectal haemorrhage [Unknown]
  - Inflammatory bowel disease [Unknown]
  - Frequent bowel movements [Unknown]
  - Abdominal pain [Unknown]
  - Diarrhoea [Unknown]
  - Pain [Unknown]
